FAERS Safety Report 4343968-4 (Version None)
Quarter: 2004Q2

REPORT INFORMATION
  Report Type: 
  Country: None (occurrence: None)
  Receive Date: 20040422
  Receipt Date: 20040415
  Transmission Date: 20050107
  Serious: Yes (Life-Threatening)
  Sender: FDA-Public Use
  Company Number: IT-ROCHE-364413

PATIENT
  Age: 68 Year
  Sex: Male

DRUGS (1)
  1. ROCEPHIN [Suspect]
     Route: 030
     Dates: start: 20040401, end: 20040401

REACTIONS (4)
  - DYSPNOEA [None]
  - EXANTHEM [None]
  - LARYNGEAL OEDEMA [None]
  - NAUSEA [None]
